FAERS Safety Report 25087041 (Version 2)
Quarter: 2025Q1

REPORT INFORMATION
  Report Type: Spontaneous
  Country: US (occurrence: US)
  Receive Date: 20250318
  Receipt Date: 20250324
  Transmission Date: 20250409
  Serious: Yes (Other)
  Sender: UCB
  Company Number: US-UCBSA-2025009500

PATIENT

DRUGS (4)
  1. KEPPRA [Suspect]
     Active Substance: LEVETIRACETAM
     Indication: Product used for unknown indication
     Dosage: 2000 MILLIGRAM, 2X/DAY (BID)
  2. KEPPRA [Suspect]
     Active Substance: LEVETIRACETAM
     Dosage: 500 MILLIGRAM, ONCE IN LATE EVENINGS FOR ONE WEEK
  3. KEPPRA [Suspect]
     Active Substance: LEVETIRACETAM
     Dosage: 250 MILLIGRAM, 2X/DAY (BID)
  4. DECADRON [Concomitant]
     Active Substance: DEXAMETHASONE
     Indication: Product used for unknown indication

REACTIONS (32)
  - Seizure [Unknown]
  - Decreased immune responsiveness [Unknown]
  - Surgery [Unknown]
  - Meningioma [Unknown]
  - Tumour excision [Unknown]
  - Craniotomy [Unknown]
  - Pharyngeal swelling [Not Recovered/Not Resolved]
  - Joint swelling [Recovering/Resolving]
  - Irritability [Unknown]
  - Insomnia [Recovering/Resolving]
  - Fluid retention [Unknown]
  - Flatulence [Unknown]
  - Nail infection [Unknown]
  - Fatigue [Unknown]
  - Gait disturbance [Unknown]
  - Amnesia [Unknown]
  - Disturbance in attention [Unknown]
  - Anxiety [Unknown]
  - Coordination abnormal [Unknown]
  - Hypoaesthesia [Unknown]
  - Visual impairment [Unknown]
  - Scar [Recovered/Resolved]
  - COVID-19 [Unknown]
  - Diplopia [Recovering/Resolving]
  - Weight decreased [Recovered/Resolved]
  - Peripheral swelling [Recovering/Resolving]
  - Blood pressure decreased [Unknown]
  - Wrong technique in product usage process [Unknown]
  - Product size issue [Unknown]
  - Product availability issue [Unknown]
  - Adverse drug reaction [Unknown]
  - Off label use [Unknown]
